FAERS Safety Report 16758293 (Version 2)
Quarter: 2025Q2

REPORT INFORMATION
  Report Type: Spontaneous
  Country: PT (occurrence: PT)
  Receive Date: 20190830
  Receipt Date: 20250624
  Transmission Date: 20250716
  Serious: Yes (Congenital Anomaly, Other)
  Sender: AUROBINDO
  Company Number: PT-AUROBINDO-AUR-APL-2019-057310

PATIENT
  Age: 15 Year
  Sex: Female

DRUGS (2)
  1. IBUPROFEN [Suspect]
     Active Substance: IBUPROFEN
     Indication: Abdominal pain lower
     Route: 065
  2. IBUPROFEN [Suspect]
     Active Substance: IBUPROFEN
     Indication: Dysmenorrhoea
     Route: 065

REACTIONS (6)
  - Vaginal atresia [Recovered/Resolved]
  - Renal aplasia [Recovered/Resolved]
  - Haematosalpinx [Recovered/Resolved]
  - Congenital uterine anomaly [Recovered/Resolved]
  - Congenital genital malformation female [Recovered/Resolved]
  - Drug ineffective [Not Recovered/Not Resolved]
